FAERS Safety Report 6822149-6 (Version None)
Quarter: 2010Q3

REPORT INFORMATION
  Report Type: 
  Country: None (occurrence: None)
  Receive Date: 20100702
  Receipt Date: 20100623
  Transmission Date: 20110219
  Serious: Yes (Other)
  Sender: FDA-Public Use
  Company Number: 2010SP031398

PATIENT
  Age: 43 Year
  Sex: Male
  Weight: 82 kg

DRUGS (8)
  1. REBETOL [Suspect]
     Indication: HEPATITIS C
     Dosage: 1000 MG; QD; PO
     Route: 048
     Dates: start: 20100127, end: 20100605
  2. PEG-INTRON [Suspect]
     Indication: HEPATITIS C
     Dosage: 120 MCG; QW; IM
     Route: 030
     Dates: start: 20100127
  3. INTERFERON [Suspect]
     Indication: HEPATITIS C
     Dosage: 6 MIU; TIW; IV
     Route: 042
     Dates: start: 20100513, end: 20100531
  4. MUCOSTA [Concomitant]
  5. LOXONIN (LOXOPREOFEN SODIUM HYDRATE [Concomitant]
  6. HOKUNALIN (TULOBUTEROL) [Concomitant]
  7. ALLELOCK [Concomitant]
  8. MYSLEE [Concomitant]

REACTIONS (7)
  - BLOOD CREATINE PHOSPHOKINASE INCREASED [None]
  - COUGH [None]
  - DEPRESSIVE SYMPTOM [None]
  - INSOMNIA [None]
  - IRRITABILITY [None]
  - MUSCULOSKELETAL STIFFNESS [None]
  - PSORIASIS [None]
